FAERS Safety Report 18393918 (Version 1)
Quarter: 2020Q4

REPORT INFORMATION
  Report Type: Spontaneous
  Country: CN (occurrence: CN)
  Receive Date: 20201016
  Receipt Date: 20201016
  Transmission Date: 20210114
  Serious: Yes (Death)
  Sender: FDA-Public Use
  Company Number: CN-ASTRAZENECA-2020SF33315

PATIENT
  Age: 65 Year
  Sex: Male
  Weight: 50 kg

DRUGS (2)
  1. IMFINZI [Suspect]
     Active Substance: DURVALUMAB
     Indication: NON-SMALL CELL LUNG CANCER STAGE III
     Dosage: 500MG/10ML; UNKNOWN FREQUENCY
     Route: 042
  2. PLATINUM [Concomitant]
     Active Substance: PLATINUM
     Dosage: 500MG/CYCLE
     Dates: start: 20200525, end: 20200608

REACTIONS (1)
  - Death [Fatal]
